FAERS Safety Report 16651340 (Version 1)
Quarter: 2019Q3

REPORT INFORMATION
  Report Type: Spontaneous
  Country: US (occurrence: US)
  Receive Date: 20190731
  Receipt Date: 20190731
  Transmission Date: 20191004
  Serious: No
  Sender: FDA-Public Use
  Company Number: US-AMAG PHARMACEUTICALS, INC.-AMAG201903959

PATIENT
  Sex: Female
  Weight: 59.02 kg

DRUGS (3)
  1. INTRAROSA [Suspect]
     Active Substance: PRASTERONE
     Dosage: EVERY NIGHT
     Route: 067
     Dates: start: 2019
  2. INTRAROSA [Suspect]
     Active Substance: PRASTERONE
     Indication: VULVOVAGINAL DRYNESS
     Dosage: EVERY NIGHT
     Route: 067
     Dates: start: 2019, end: 2019
  3. INTRAROSA [Suspect]
     Active Substance: PRASTERONE
     Indication: MICTURITION URGENCY
     Dosage: EVERY OTHER NIGHT
     Route: 067
     Dates: start: 2019, end: 2019

REACTIONS (2)
  - Alopecia [Not Recovered/Not Resolved]
  - Off label use [Unknown]

NARRATIVE: CASE EVENT DATE: 2019
